FAERS Safety Report 21094421 (Version 4)
Quarter: 2022Q3

REPORT INFORMATION
  Report Type: Spontaneous
  Country: US (occurrence: US)
  Receive Date: 20220718
  Receipt Date: 20220907
  Transmission Date: 20221026
  Serious: Yes (Life-Threatening, Other)
  Sender: FDA-Public Use
  Company Number: US-PFIZER INC-PV202200023660

PATIENT
  Age: 18 Year
  Sex: Female

DRUGS (1)
  1. ZIRABEV [Suspect]
     Active Substance: BEVACIZUMAB-BVZR
     Indication: Glioblastoma multiforme
     Dosage: 577 MG, 2X/WEEK  (FREQUENCY: Q 2 WKS)

REACTIONS (3)
  - Brain neoplasm malignant [Unknown]
  - Off label use [Unknown]
  - Feeling abnormal [Unknown]
